FAERS Safety Report 6759718-8 (Version None)
Quarter: 2010Q2

REPORT INFORMATION
  Report Type: 
  Country: None (occurrence: None)
  Receive Date: 20100608
  Receipt Date: 20100525
  Transmission Date: 20101027
  Serious: Yes (Hospitalization, Other)
  Sender: FDA-Public Use
  Company Number: US-BAYER-200941419NA

PATIENT
  Age: 35 Year
  Sex: Female
  Weight: 95 kg

DRUGS (4)
  1. YASMIN [Suspect]
     Indication: DRUG USE FOR UNKNOWN INDICATION
     Route: 048
     Dates: start: 20050901, end: 20071230
  2. ZYRTEC-D 12 HOUR [Concomitant]
     Dosage: 1 P.O. DAILY
     Route: 048
  3. MEPERGAN [Concomitant]
     Indication: HEADACHE
     Dates: start: 20071201
  4. ZOLOFT [Concomitant]

REACTIONS (9)
  - ABDOMINAL PAIN UPPER [None]
  - BACK PAIN [None]
  - CHOLECYSTITIS [None]
  - CHOLELITHIASIS [None]
  - DEEP VEIN THROMBOSIS [None]
  - GASTRIC DISORDER [None]
  - PAINFUL RESPIRATION [None]
  - PULMONARY EMBOLISM [None]
  - PULMONARY INFARCTION [None]
